FAERS Safety Report 14692771 (Version 1)
Quarter: 2018Q1

REPORT INFORMATION
  Report Type: Report from Study
  Country: None (occurrence: IT)
  Receive Date: 20180329
  Receipt Date: 20180329
  Transmission Date: 20180509
  Serious: Yes (Hospitalization)
  Sender: FDA-Public Use
  Company Number: IT-CONCORDIA PHARMACEUTICALS INC.-E2B_00010573

PATIENT
  Age: 95 Year
  Sex: Female

DRUGS (1)
  1. LANOXIN [Suspect]
     Active Substance: DIGOXIN
     Route: 048
     Dates: start: 20171220, end: 20171222

REACTIONS (4)
  - Sopor [Recovering/Resolving]
  - Medication error [Recovering/Resolving]
  - Bradycardia [Recovering/Resolving]
  - Dyspnoea [Recovering/Resolving]

NARRATIVE: CASE EVENT DATE: 20171220
